FAERS Safety Report 4412887-7 (Version None)
Quarter: 2004Q3

REPORT INFORMATION
  Report Type: 
  Country: None (occurrence: None)
  Receive Date: 20040802
  Receipt Date: 20040729
  Transmission Date: 20050211
  Serious: Yes (Death)
  Sender: FDA-Public Use
  Company Number: PHBS2004BR10026

PATIENT
  Sex: Male

DRUGS (1)
  1. HYDERGINE [Suspect]
     Dosage: 4.5 MG, TID
     Route: 048

REACTIONS (1)
  - DEATH [None]
